FAERS Safety Report 9050535 (Version 2)
Quarter: 2013Q1

REPORT INFORMATION
  Report Type: Spontaneous
  Country: US (occurrence: US)
  Receive Date: 20130205
  Receipt Date: 20130328
  Transmission Date: 20140127
  Serious: Yes (Hospitalization)
  Sender: FDA-Public Use
  Company Number: US-B.I. PHARMACEUTICALS,INC./RIDGEFIELD-2013-BI-02808BP

PATIENT
  Age: 76 Year
  Sex: Male
  Weight: 62.1 kg

DRUGS (7)
  1. PRADAXA [Suspect]
     Indication: ATRIAL FIBRILLATION
     Dosage: 300 MG
     Dates: start: 2010, end: 20130107
  2. ALBUTEROL MDI [Concomitant]
     Indication: ASTHMA
  3. SINGULAIR [Concomitant]
     Indication: ASTHMA
  4. EPI PEN [Concomitant]
     Indication: HYPERSENSITIVITY
  5. FLUTICASONE [Concomitant]
     Indication: HYPERSENSITIVITY
  6. HCTZ [Concomitant]
     Indication: HYPERTENSION
  7. METOPROLOL [Concomitant]
     Indication: ATRIAL FIBRILLATION

REACTIONS (1)
  - Spinal epidural haemorrhage [Recovered/Resolved]
